FAERS Safety Report 19083552 (Version 1)
Quarter: 2021Q2

REPORT INFORMATION
  Report Type: Spontaneous
  Country: US (occurrence: US)
  Receive Date: 20210401
  Receipt Date: 20210401
  Transmission Date: 20210717
  Serious: Yes (Other)
  Sender: FDA-Public Use
  Company Number: US-CLINIGEN GROUP PLC/ CLINIGEN HEALTHCARE LTD-US-CLGN-21-00153

PATIENT
  Age: 33 Month
  Sex: Female

DRUGS (6)
  1. DEXRAZOXANE HCL [Suspect]
     Active Substance: DEXRAZOXANE HYDROCHLORIDE
     Indication: FIBROSARCOMA
  2. DOXORUBICIN [Concomitant]
     Active Substance: DOXORUBICIN
     Indication: FIBROSARCOMA
  3. ACTINOMYCIN D [Concomitant]
     Active Substance: DACTINOMYCIN
     Indication: FIBROSARCOMA
  4. CYCLOPHOSPHAMIDE. [Concomitant]
     Active Substance: CYCLOPHOSPHAMIDE
     Indication: FIBROSARCOMA
  5. IFOSFAMIDE. [Concomitant]
     Active Substance: IFOSFAMIDE
     Indication: FIBROSARCOMA
  6. VINCRISTINE [Concomitant]
     Active Substance: VINCRISTINE
     Indication: FIBROSARCOMA

REACTIONS (1)
  - Drug effective for unapproved indication [Unknown]
